FAERS Safety Report 12885174 (Version 1)
Quarter: 2016Q4

REPORT INFORMATION
  Report Type: Report from Study
  Country: MX (occurrence: MX)
  Receive Date: 20161026
  Receipt Date: 20161026
  Transmission Date: 20170207
  Serious: Yes (Disabling)
  Sender: FDA-Public Use
  Company Number: PHHY2016MX146789

PATIENT
  Age: 64 Year
  Sex: Female

DRUGS (1)
  1. EXFORGE HCT [Suspect]
     Active Substance: AMLODIPINE BESYLATE\HYDROCHLOROTHIAZIDE\VALSARTAN
     Indication: PERIPHERAL SWELLING
     Dosage: 1 DF (AMLODIPINE 5 MG, HYDROCHLOROTHIAZIDE 12.5 MG, VALSARTAN 160 MG), QD
     Route: 065
     Dates: start: 20161014

REACTIONS (5)
  - Nervous system disorder [Unknown]
  - Product use issue [Not Recovered/Not Resolved]
  - Cardiac disorder [Unknown]
  - Abasia [Unknown]
  - Anaemia [Unknown]

NARRATIVE: CASE EVENT DATE: 20161014
